FAERS Safety Report 13504834 (Version 4)
Quarter: 2018Q1

REPORT INFORMATION
  Report Type: Spontaneous
  Country: US (occurrence: US)
  Receive Date: 20170502
  Receipt Date: 20180123
  Transmission Date: 20180508
  Serious: No
  Sender: FDA-Public Use
  Company Number: US-IMPAX LABORATORIES, INC-2017-IPXL-00406

PATIENT
  Age: 74 Year
  Sex: Male
  Weight: 68 kg

DRUGS (18)
  1. ENTACAPONE. [Concomitant]
     Active Substance: ENTACAPONE
     Indication: PARKINSON^S DISEASE
     Dosage: UNK
     Route: 065
  2. RYTARY [Suspect]
     Active Substance: CARBIDOPA\LEVODOPA
     Indication: PARKINSON^S DISEASE
     Dosage: 61.25/ 245 MG, 1 CAPSULE, 6 /DAY
     Route: 048
     Dates: start: 20170213, end: 2017
  3. RYTARY [Suspect]
     Active Substance: CARBIDOPA\LEVODOPA
     Dosage: 48.75/195 MG, 3 CAPSULES, 6 /DAY
     Route: 048
     Dates: start: 2017, end: 201704
  4. RYTARY [Suspect]
     Active Substance: CARBIDOPA\LEVODOPA
     Dosage: 61.25/ 245 MG, 3 CAPSULE, 6 /DAY
     Route: 048
     Dates: start: 2017, end: 2017
  5. FORT E VITE [Concomitant]
     Indication: VITAMIN SUPPLEMENTATION
     Dosage: UNK, 1 /DAY
     Route: 065
  6. RIVASTIGMINE. [Concomitant]
     Active Substance: RIVASTIGMINE
     Indication: MEMORY IMPAIRMENT
     Dosage: 9.5 MG, 1 /DAY
     Route: 062
  7. QUETIAPINE. [Concomitant]
     Active Substance: QUETIAPINE
     Indication: DEMENTIA
     Dosage: 25 MG, 2 /DAY
     Route: 065
  8. AZILECT [Concomitant]
     Active Substance: RASAGILINE MESYLATE
     Indication: PARKINSON^S DISEASE
     Dosage: 1 MG, 1 /DAY
     Route: 065
  9. SINEMET [Concomitant]
     Active Substance: CARBIDOPA\LEVODOPA
     Indication: PARKINSON^S DISEASE
     Dosage: UNK
     Route: 065
  10. RYTARY [Suspect]
     Active Substance: CARBIDOPA\LEVODOPA
     Dosage: 36.25/145 MG ONE CAPSULE, 23.75/95 MG, ONE CAPSULE, 6 TIMES/DAY
     Route: 048
  11. RYTARY [Suspect]
     Active Substance: CARBIDOPA\LEVODOPA
     Dosage: ONE 36.25/145 MG CAPSULE , ONE ONE 23.75/95 MG
     Route: 048
  12. MEMANTINE. [Concomitant]
     Active Substance: MEMANTINE
     Indication: DEMENTIA
     Dosage: 10 MG, 2 /DAY
     Route: 065
  13. RYTARY [Suspect]
     Active Substance: CARBIDOPA\LEVODOPA
     Dosage: 48.75/195 MG, 3 CAPSULES, 5 /DAY
     Route: 048
     Dates: start: 201704
  14. MYRBETRIQ [Concomitant]
     Active Substance: MIRABEGRON
     Indication: URINARY INCONTINENCE
     Dosage: 25 MG, 1 /DAY
     Route: 065
  15. RYTARY [Suspect]
     Active Substance: CARBIDOPA\LEVODOPA
     Dosage: 36.25/145 MG, 2 CAPSULES 6 TIMES A DAY
     Route: 065
     Dates: start: 2017, end: 2017
  16. RYTARY [Suspect]
     Active Substance: CARBIDOPA\LEVODOPA
     Dosage: 61.25/ 245 MG, 2 CAPSULE, SIX TIMES PER DAY (EVERY THREE HOURS)
     Route: 048
  17. SERTRALINE [Concomitant]
     Active Substance: SERTRALINE HYDROCHLORIDE
     Indication: DEMENTIA
     Dosage: 25 MG, 2 /DAY
     Route: 065
  18. VITAMIN D [Concomitant]
     Active Substance: CHOLECALCIFEROL
     Indication: VITAMIN SUPPLEMENTATION
     Dosage: ONE LARGE DOSE, ONCE A WEEK
     Route: 065

REACTIONS (13)
  - Pollakiuria [Not Recovered/Not Resolved]
  - Somnolence [Recovered/Resolved]
  - Fatigue [Unknown]
  - Injury [Unknown]
  - Fall [Unknown]
  - Diarrhoea [Recovered/Resolved]
  - Blood pressure increased [Recovered/Resolved]
  - Hallucination [Recovered/Resolved]
  - Poor quality sleep [Recovered/Resolved]
  - Prescribed overdose [Unknown]
  - Bradyphrenia [Unknown]
  - Balance disorder [Unknown]
  - Therapeutic response shortened [Unknown]

NARRATIVE: CASE EVENT DATE: 201702
